FAERS Safety Report 6521657-5 (Version None)
Quarter: 2009Q4

REPORT INFORMATION
  Report Type: 
  Country: None (occurrence: None)
  Receive Date: 20091214
  Receipt Date: 20090707
  Transmission Date: 20100525
  Serious: Yes (Other)
  Sender: FDA-Public Use
  Company Number: 642920

PATIENT
  Age: 39 Year
  Sex: Female

DRUGS (2)
  1. PEGASYS [Suspect]
     Indication: HEPATITIS C
     Dosage: 180 UG 1 PER 1 WEEK
     Dates: start: 20080722
  2. RIBAVIRIN [Suspect]
     Indication: HEPATITIS C
     Dosage: 1000 MG DAILY
     Dates: start: 20080722

REACTIONS (5)
  - HAEMOGLOBIN DECREASED [None]
  - HYPOTHYROIDISM [None]
  - IMPAIRED HEALING [None]
  - LYMPHADENOPATHY [None]
  - SPLENOMEGALY [None]
